FAERS Safety Report 12337990 (Version 1)
Quarter: 2016Q2

REPORT INFORMATION
  Report Type: Spontaneous
  Country: FR (occurrence: FR)
  Receive Date: 20160505
  Receipt Date: 20160505
  Transmission Date: 20160815
  Serious: Yes (Hospitalization)
  Sender: FDA-Public Use
  Company Number: FR-SA-2016SA087828

PATIENT
  Age: 91 Year
  Sex: Female

DRUGS (14)
  1. LASILIX [Suspect]
     Active Substance: FUROSEMIDE
     Indication: OEDEMA
     Route: 065
     Dates: start: 20160324, end: 20160329
  2. LASILIX [Suspect]
     Active Substance: FUROSEMIDE
     Indication: OEDEMA
     Route: 065
     Dates: start: 201603, end: 201603
  3. LOVENOX [Suspect]
     Active Substance: ENOXAPARIN SODIUM
     Indication: PHLEBITIS
     Route: 065
     Dates: start: 20160316, end: 20160324
  4. LOXEN [Concomitant]
     Active Substance: NICARDIPINE HYDROCHLORIDE
  5. KARDEGIC [Concomitant]
     Active Substance: ASPIRIN LYSINE
  6. SERESTA [Concomitant]
     Active Substance: OXAZEPAM
  7. FENOFIBRATE. [Concomitant]
     Active Substance: FENOFIBRATE
  8. GALANTAMINE. [Concomitant]
     Active Substance: GALANTAMINE
  9. LOVENOX [Suspect]
     Active Substance: ENOXAPARIN SODIUM
     Indication: PHLEBITIS
     Route: 065
     Dates: start: 20160325, end: 20160329
  10. HYDROCHLOROTHIAZIDE/VALSARTAN [Concomitant]
     Dosage: 160MG/12.5MG
  11. EUPRESSYL [Concomitant]
     Active Substance: URAPIDIL
  12. ESOMEPRAZOLE [Concomitant]
     Active Substance: ESOMEPRAZOLE
  13. SEROPLEX [Concomitant]
     Active Substance: ESCITALOPRAM OXALATE
  14. TAZOCILLINE [Suspect]
     Active Substance: PIPERACILLIN SODIUM\TAZOBACTAM SODIUM
     Indication: INFECTION
     Route: 065
     Dates: start: 20160323, end: 20160329

REACTIONS (1)
  - Neutropenia [Recovered/Resolved]

NARRATIVE: CASE EVENT DATE: 20160329
